FAERS Safety Report 8471362 (Version 8)
Quarter: 2013Q4

REPORT INFORMATION
  Report Type: Spontaneous
  Country: TR (occurrence: TR)
  Receive Date: 20120322
  Receipt Date: 20131010
  Transmission Date: 20140711
  Serious: Yes (Other)
  Sender: FDA-Public Use
  Company Number: TR-AMGEN-TURSP2012015848

PATIENT
  Age: 52 Year
  Sex: Female

DRUGS (4)
  1. ENBREL [Suspect]
     Indication: RHEUMATOID ARTHRITIS
     Dosage: 50 MG, QWK
     Route: 058
     Dates: start: 20080715, end: 20110927
  2. ENBREL [Suspect]
     Dosage: 50 MG, WEEKLY
     Route: 058
     Dates: start: 20110927, end: 20120201
  3. ENBREL [Suspect]
     Dosage: 50 MG, WEEKLY
     Route: 058
     Dates: start: 20130219, end: 20130219
  4. ENBREL [Suspect]
     Dosage: 50 MG, QWK
     Route: 058
     Dates: start: 2013

REACTIONS (17)
  - Dental caries [Not Recovered/Not Resolved]
  - Cough [Not Recovered/Not Resolved]
  - Fear [Not Recovered/Not Resolved]
  - Bone pain [Not Recovered/Not Resolved]
  - Pneumonia [Recovered/Resolved]
  - Tooth abscess [Recovered/Resolved]
  - Pharyngitis [Recovered/Resolved]
  - Influenza [Recovered/Resolved]
  - Headache [Not Recovered/Not Resolved]
  - Swelling face [Recovered/Resolved]
  - Pain in extremity [Not Recovered/Not Resolved]
  - Blood pressure fluctuation [Not Recovered/Not Resolved]
  - Pulpitis dental [Recovered/Resolved]
  - Injection site haemorrhage [Not Recovered/Not Resolved]
  - Injection site pain [Not Recovered/Not Resolved]
  - Injection site swelling [Not Recovered/Not Resolved]
  - Injection site erythema [Not Recovered/Not Resolved]
